FAERS Safety Report 4734781-4 (Version None)
Quarter: 2005Q3

REPORT INFORMATION
  Report Type: 
  Country: None (occurrence: None)
  Receive Date: 20050804
  Receipt Date: 20050715
  Transmission Date: 20060218
  Serious: Yes (Life-Threatening, Hospitalization)
  Sender: FDA-Public Use
  Company Number: DE-GLAXOSMITHKLINE-D0047099A

PATIENT
  Age: 69 Year
  Sex: Male

DRUGS (8)
  1. QUILONUM RETARD [Suspect]
     Indication: DEPRESSION
     Dosage: 6TAB PER DAY
     Route: 048
     Dates: start: 20050616, end: 20050621
  2. HYPNOREX [Concomitant]
     Route: 065
  3. RAMIPRIL [Concomitant]
     Dosage: 5MG IN THE MORNING
     Route: 065
  4. RISPERIDONE [Concomitant]
     Dosage: 1MG IN THE MORNING
     Route: 065
  5. MOCLOBEMID [Concomitant]
     Dosage: 750MG PER DAY
     Route: 065
  6. ORFIRIL [Concomitant]
     Dosage: 10ML TWICE PER DAY
     Route: 048
  7. PHENPROCOUMON [Concomitant]
     Route: 065
  8. JODID [Concomitant]
     Dosage: 100U TWICE PER DAY
     Route: 065

REACTIONS (11)
  - ACCIDENTAL OVERDOSE [None]
  - ATRIAL FIBRILLATION [None]
  - COMA [None]
  - HYPERTENSION [None]
  - NAUSEA [None]
  - PNEUMONIA ASPIRATION [None]
  - PULMONARY HYPERTENSION [None]
  - SICK SINUS SYNDROME [None]
  - THERAPEUTIC AGENT TOXICITY [None]
  - TREMOR [None]
  - VOMITING [None]
